FAERS Safety Report 7705295-4 (Version None)
Quarter: 2011Q3

REPORT INFORMATION
  Report Type: 
  Country: None (occurrence: None)
  Receive Date: 20110818
  Receipt Date: 20110802
  Transmission Date: 20111222
  Serious: Yes (Life-Threatening, Hospitalization, Other)
  Sender: FDA-Public Use
  Company Number: 2011MA010849

PATIENT
  Age: 49 Year
  Sex: Male

DRUGS (1)
  1. METFORMIN HYDROCHLORIDE [Suspect]
     Indication: SUICIDE ATTEMPT
     Dosage: 45 GRAM;X1;

REACTIONS (9)
  - IRRITABILITY [None]
  - TOXICITY TO VARIOUS AGENTS [None]
  - SUICIDE ATTEMPT [None]
  - DEPRESSED LEVEL OF CONSCIOUSNESS [None]
  - HYPERKALAEMIA [None]
  - OVERDOSE [None]
  - CONTINUOUS HAEMODIAFILTRATION [None]
  - LACTIC ACIDOSIS [None]
  - HAEMODYNAMIC INSTABILITY [None]
